FAERS Safety Report 10072131 (Version 2)
Quarter: 2014Q2

REPORT INFORMATION
  Report Type: Spontaneous
  Country: US (occurrence: US)
  Receive Date: 20140411
  Receipt Date: 20140530
  Transmission Date: 20141212
  Serious: Yes (Death, Life-Threatening, Hospitalization, Other)
  Sender: FDA-Public Use
  Company Number: US-MERCK-1404USA005932

PATIENT
  Sex: Female
  Weight: 102.4 kg

DRUGS (2)
  1. JANUVIA [Suspect]
     Indication: TYPE 2 DIABETES MELLITUS
     Dosage: 100 MG, QD
     Route: 048
     Dates: start: 20120222, end: 20121024
  2. TRADJENTA [Suspect]
     Indication: TYPE 2 DIABETES MELLITUS
     Dosage: 5 MG, QD
     Dates: start: 20121017, end: 20121220

REACTIONS (33)
  - Cardio-respiratory arrest [Fatal]
  - Pancreatic carcinoma [Fatal]
  - Explorative laparotomy [Unknown]
  - Metastases to ovary [Unknown]
  - Metastatic neoplasm [Unknown]
  - Metastatic neoplasm [Unknown]
  - Dehydration [Unknown]
  - Surgery [Unknown]
  - Renal failure acute [Unknown]
  - Renal failure chronic [Unknown]
  - Atrophy [Unknown]
  - Bile duct obstruction [Unknown]
  - Bile duct stent insertion [Unknown]
  - Ovarian cyst [Unknown]
  - Uterine prolapse [Unknown]
  - Brain natriuretic peptide increased [Unknown]
  - Pleural effusion [Unknown]
  - Atelectasis [Unknown]
  - Gastrooesophageal reflux disease [Unknown]
  - Hypercalcaemia [Unknown]
  - Anxiety [Unknown]
  - Dermatitis [Unknown]
  - Musculoskeletal chest pain [Unknown]
  - Foot deformity [Unknown]
  - Aortic valve disease [Unknown]
  - Hypertriglyceridaemia [Unknown]
  - Ligament sprain [Unknown]
  - Essential hypertension [Unknown]
  - Arteriosclerosis coronary artery [Unknown]
  - Insomnia [Unknown]
  - Onychomycosis [Unknown]
  - Salpingo-oophorectomy bilateral [Unknown]
  - Hysterectomy [Unknown]
